FAERS Safety Report 25697968 (Version 2)
Quarter: 2025Q3

REPORT INFORMATION
  Report Type: Report from Study
  Country: US (occurrence: US)
  Receive Date: 20250819
  Receipt Date: 20250926
  Transmission Date: 20251021
  Serious: No
  Sender: ACADIA PHARMACEUTICALS
  Company Number: US-ACADIA PHARMACEUTICALS INC.-ACA-2025-PIM-009209

PATIENT
  Sex: Female

DRUGS (3)
  1. NUPLAZID [Suspect]
     Active Substance: PIMAVANSERIN TARTRATE
     Indication: Parkinson^s disease psychosis
     Dosage: 34 MILLIGRAM, QD
     Route: 048
     Dates: start: 202411
  2. RYTARY [Concomitant]
     Active Substance: CARBIDOPA\LEVODOPA
  3. RIVASTIGMINE PATCH 5 [Concomitant]

REACTIONS (3)
  - Extra dose administered [Recovered/Resolved]
  - Product use issue [Recovered/Resolved]
  - Intentional dose omission [Recovered/Resolved]
